FAERS Safety Report 21904612 (Version 1)
Quarter: 2023Q1

REPORT INFORMATION
  Report Type: Spontaneous
  Country: US (occurrence: US)
  Receive Date: 20230124
  Receipt Date: 20230124
  Transmission Date: 20230417
  Serious: No
  Sender: FDA-Public Use
  Company Number: US-BIOGENIDEC-2014BI099878

PATIENT
  Age: 55 Year
  Sex: Female

DRUGS (8)
  1. TECFIDERA [Suspect]
     Active Substance: DIMETHYL FUMARATE
     Indication: Multiple sclerosis
     Route: 050
     Dates: start: 20140917
  2. TECFIDERA [Suspect]
     Active Substance: DIMETHYL FUMARATE
     Route: 050
     Dates: start: 20140920
  3. TECFIDERA [Suspect]
     Active Substance: DIMETHYL FUMARATE
     Route: 050
     Dates: start: 20140922, end: 20210630
  4. ASPIRIN [Concomitant]
     Active Substance: ASPIRIN
     Route: 050
  5. GABAPENTIN [Concomitant]
     Active Substance: GABAPENTIN
     Route: 050
  6. PANTOPRAZOLE SODIUM [Concomitant]
     Active Substance: PANTOPRAZOLE SODIUM
     Route: 050
  7. TRAMADOL HCL [Concomitant]
     Active Substance: TRAMADOL HYDROCHLORIDE
     Route: 050
  8. MECLIZINE [Concomitant]
     Active Substance: MECLIZINE HYDROCHLORIDE
     Route: 050

REACTIONS (7)
  - Gastric disorder [Unknown]
  - Illness [Recovered/Resolved]
  - Feeling hot [Not Recovered/Not Resolved]
  - Dyspepsia [Unknown]
  - Nausea [Unknown]
  - Vomiting [Unknown]
  - Abdominal discomfort [Unknown]

NARRATIVE: CASE EVENT DATE: 20140901
